FAERS Safety Report 23970067 (Version 1)
Quarter: 2024Q2

REPORT INFORMATION
  Report Type: Report from Study
  Country: NL (occurrence: NL)
  Receive Date: 20240613
  Receipt Date: 20240613
  Transmission Date: 20240716
  Serious: Yes (Death)
  Sender: FDA-Public Use
  Company Number: NL-ABBVIE-4300995

PATIENT
  Age: 67 Year
  Sex: Male

DRUGS (7)
  1. CARBIDOPA\LEVODOPA [Suspect]
     Active Substance: CARBIDOPA\LEVODOPA
     Indication: Parkinson^s disease
     Dosage: DURATION TEXT: REMAINS AT 16 HOURS
     Route: 050
  2. CARBIDOPA\LEVODOPA [Suspect]
     Active Substance: CARBIDOPA\LEVODOPA
     Dosage: MD: 10.1ML CD: 4.6ML ED: 2.0ML?LAST ADMIN IN 2024?DURATION TEXT: REMAINS AT 16 HOURS
     Route: 050
     Dates: start: 20240130
  3. CARBIDOPA\LEVODOPA [Suspect]
     Active Substance: CARBIDOPA\LEVODOPA
     Dosage: MD: 10.1ML CD: 3.7ML ED: 2.0ML?DURATION TEXT: REMAINS AT 16 HOURS
     Route: 050
     Dates: start: 20240318, end: 20240328
  4. CARBIDOPA\LEVODOPA [Suspect]
     Active Substance: CARBIDOPA\LEVODOPA
     Dosage: MD: 10.1ML CD: 4.0ML ED: 2.0ML?LAST ADMIN IN 2024?DURATION TEXT: REMAINS AT 16 HOURS
     Route: 050
     Dates: start: 20240314
  5. CARBIDOPA\LEVODOPA [Suspect]
     Active Substance: CARBIDOPA\LEVODOPA
     Dosage: MD: 10.1ML CD: 4.3ML ED: 2.0ML?LAST ADMIN IN 2024?DURATION TEXT: REMAINS AT 16 HOURS
     Route: 050
     Dates: start: 20240311
  6. DESMOPRESSIN [Concomitant]
     Active Substance: DESMOPRESSIN
     Indication: Incontinence
  7. BENSERAZIDE HYDROCHLORIDE\LEVODOPA [Concomitant]
     Active Substance: BENSERAZIDE HYDROCHLORIDE\LEVODOPA
     Indication: Product used for unknown indication
     Dosage: FREQUENCY TEXT: DURING THE NIGHT

REACTIONS (5)
  - Death [Fatal]
  - Dementia [Not Recovered/Not Resolved]
  - Device dislocation [Recovered/Resolved]
  - General physical health deterioration [Not Recovered/Not Resolved]
  - Constipation [Unknown]

NARRATIVE: CASE EVENT DATE: 20230101
